FAERS Safety Report 5350419-X (Version None)
Quarter: 2007Q2

REPORT INFORMATION
  Report Type: 
  Country: None (occurrence: None)
  Receive Date: 20070605
  Receipt Date: 20070605
  Transmission Date: 20071010
  Serious: Yes (Death, Hospitalization)
  Sender: FDA-Public Use
  Company Number: None

PATIENT
  Age: 61 Year
  Sex: Female
  Weight: 57.8 kg

DRUGS (2)
  1. GEMCITABINE [Suspect]
     Indication: T-CELL LYMPHOMA REFRACTORY
     Dosage: 1280 MG DAYS 1 AND 8 IV DRIP
     Route: 041
     Dates: start: 20070316, end: 20070405
  2. BORTEZOMIB [Suspect]
     Indication: T-CELL LYMPHOMA REFRACTORY
     Dosage: 2.6 MG DAYS 1 AND 8 IV DRIP
     Route: 041
     Dates: start: 20070316, end: 20070405

REACTIONS (5)
  - COUGH [None]
  - DISEASE PROGRESSION [None]
  - DYSPNOEA [None]
  - PNEUMONIA VIRAL [None]
  - THROMBOCYTOPENIA [None]
